FAERS Safety Report 25468611 (Version 1)
Quarter: 2025Q2

REPORT INFORMATION
  Report Type: Spontaneous
  Country: FR (occurrence: FR)
  Receive Date: 20250623
  Receipt Date: 20250623
  Transmission Date: 20250716
  Serious: Yes (Hospitalization)
  Sender: MYLAN
  Company Number: None

PATIENT
  Age: 26 Year
  Sex: Female
  Weight: 64 kg

DRUGS (12)
  1. ACETAMINOPHEN [Suspect]
     Active Substance: ACETAMINOPHEN
     Indication: Toothache
     Dates: start: 20241228, end: 20241229
  2. ACETAMINOPHEN [Suspect]
     Active Substance: ACETAMINOPHEN
     Route: 048
     Dates: start: 20241228, end: 20241229
  3. ACETAMINOPHEN [Suspect]
     Active Substance: ACETAMINOPHEN
     Route: 048
     Dates: start: 20241228, end: 20241229
  4. ACETAMINOPHEN [Suspect]
     Active Substance: ACETAMINOPHEN
     Dates: start: 20241228, end: 20241229
  5. CODEINE [Suspect]
     Active Substance: CODEINE
     Indication: Toothache
     Dates: start: 20241228, end: 20241229
  6. CODEINE [Suspect]
     Active Substance: CODEINE
     Route: 048
     Dates: start: 20241228, end: 20241229
  7. CODEINE [Suspect]
     Active Substance: CODEINE
     Route: 048
     Dates: start: 20241228, end: 20241229
  8. CODEINE [Suspect]
     Active Substance: CODEINE
     Dates: start: 20241228, end: 20241229
  9. AMOXICILLIN [Concomitant]
     Active Substance: AMOXICILLIN
  10. AMOXICILLIN [Concomitant]
     Active Substance: AMOXICILLIN
     Route: 065
  11. AMOXICILLIN [Concomitant]
     Active Substance: AMOXICILLIN
     Route: 065
  12. AMOXICILLIN [Concomitant]
     Active Substance: AMOXICILLIN

REACTIONS (2)
  - Hepatic cytolysis [Recovering/Resolving]
  - Intentional product misuse [Recovered/Resolved]

NARRATIVE: CASE EVENT DATE: 20241228
